FAERS Safety Report 9459643 (Version 1)
Quarter: 2013Q3

REPORT INFORMATION
  Report Type: Spontaneous
  Country: US (occurrence: US)
  Receive Date: 20130815
  Receipt Date: 20130815
  Transmission Date: 20140515
  Serious: No
  Sender: FDA-Public Use
  Company Number: US-COVIDIEN/TYCO HEALTHCARE/MALLINCKRODT-T201302350

PATIENT
  Age: 51 Year
  Sex: Female
  Weight: 68.27 kg

DRUGS (6)
  1. FENTANYL TRANSDERMAL SYSTEM [Suspect]
     Indication: BACK PAIN
     Dosage: 25 UG/HR, UNK
     Route: 062
     Dates: start: 201302
  2. BYSTOLIC [Concomitant]
     Indication: HEART RATE INCREASED
     Dosage: UNK
  3. CYMBALTA [Concomitant]
     Indication: NEURALGIA
     Dosage: UNK
  4. MIRAPEX [Concomitant]
     Indication: FIBROMYALGIA
     Dosage: UNK
  5. BUSPIRONE [Concomitant]
     Indication: ANXIETY
     Dosage: UNK
  6. KLOR-CON [Concomitant]
     Indication: MINERAL SUPPLEMENTATION
     Dosage: UNK

REACTIONS (3)
  - Application site pain [Unknown]
  - Application site discolouration [Not Recovered/Not Resolved]
  - Application site reaction [Unknown]
